FAERS Safety Report 6266903-0 (Version None)
Quarter: 2009Q3

REPORT INFORMATION
  Report Type: 
  Country: None (occurrence: None)
  Receive Date: 20090710
  Receipt Date: 20090710
  Transmission Date: 20100115
  Serious: Yes (Other)
  Sender: FDA-Public Use
  Company Number: None

PATIENT
  Age: 23 Year
  Sex: Female
  Weight: 90.7194 kg

DRUGS (1)
  1. ALLI [Suspect]
     Indication: OBESITY
     Dosage: 60MG 3 TIMES DAILY PO
     Route: 048

REACTIONS (1)
  - ALOPECIA [None]
